FAERS Safety Report 23668561 (Version 1)
Quarter: 2024Q1

REPORT INFORMATION
  Report Type: Spontaneous
  Country: RU (occurrence: RU)
  Receive Date: 20240325
  Receipt Date: 20240325
  Transmission Date: 20240410
  Serious: Yes (Death)
  Sender: FDA-Public Use
  Company Number: RU-SERVIER-S24003054

PATIENT

DRUGS (1)
  1. ONCASPAR [Suspect]
     Active Substance: PEGASPARGASE
     Indication: B-cell type acute leukaemia
     Dosage: 1480 IU, UNK
     Route: 065
     Dates: start: 202011

REACTIONS (7)
  - Pancreatitis acute [Fatal]
  - Sepsis [Fatal]
  - Agranulocytosis [Fatal]
  - Multiple organ dysfunction syndrome [Fatal]
  - Septic shock [Fatal]
  - Gastrointestinal disorder [Fatal]
  - Gastritis [Fatal]

NARRATIVE: CASE EVENT DATE: 20231015
